FAERS Safety Report 7426153-9 (Version None)
Quarter: 2011Q2

REPORT INFORMATION
  Report Type: 
  Country: None (occurrence: None)
  Receive Date: 20110420
  Receipt Date: 20110413
  Transmission Date: 20111010
  Serious: Yes (Death)
  Sender: FDA-Public Use
  Company Number: PHHY2011CA28235

PATIENT
  Sex: Female

DRUGS (4)
  1. CLOZARIL [Suspect]
     Indication: PSYCHOTIC DISORDER
     Dosage: 150 MG
     Route: 048
     Dates: start: 20110124, end: 20110310
  2. EPIVAL [Concomitant]
     Dosage: 750 MG, UNK
  3. SEROQUEL [Concomitant]
     Dosage: 400 MG, QD
     Route: 048
  4. PROPRANOLOL [Concomitant]
     Dosage: 40 MG, BID
     Route: 048

REACTIONS (2)
  - PNEUMONIA ASPIRATION [None]
  - PULMONARY EMBOLISM [None]
